FAERS Safety Report 19737728 (Version 1)
Quarter: 2021Q3

REPORT INFORMATION
  Report Type: Spontaneous
  Country: CH (occurrence: CH)
  Receive Date: 20210824
  Receipt Date: 20210824
  Transmission Date: 20211014
  Serious: Yes (Other)
  Sender: FDA-Public Use
  Company Number: CH-HQ SPECIALTY-CH-2021INT000148

PATIENT
  Sex: Female

DRUGS (4)
  1. DEXMEDETOMIDINE HYDROCHLORIDE. [Suspect]
     Active Substance: DEXMEDETOMIDINE HYDROCHLORIDE
     Indication: SEDATIVE THERAPY
     Dosage: 1.6 UG/KG, 1 HR
     Route: 042
     Dates: start: 20210529, end: 20210624
  2. AMPHOTERICINE B [Concomitant]
     Active Substance: AMPHOTERICIN B
     Indication: CANDIDA INFECTION
     Dosage: UNK
     Route: 065
  3. FUROSEMIDE. [Suspect]
     Active Substance: FUROSEMIDE
     Indication: CARDIAC FAILURE
     Dosage: VARIABLE ENTRE 2?5.2 MG/H (1 HR)
     Route: 042
     Dates: start: 20210522, end: 20210625
  4. FUROSEMIDE. [Suspect]
     Active Substance: FUROSEMIDE
     Dosage: BOLUS
     Route: 042

REACTIONS (3)
  - Overdose [Unknown]
  - Pyrexia [Recovering/Resolving]
  - Product administered to patient of inappropriate age [Unknown]

NARRATIVE: CASE EVENT DATE: 2021
